FAERS Safety Report 6384720-8 (Version None)
Quarter: 2009Q4

REPORT INFORMATION
  Report Type: 
  Country: None (occurrence: None)
  Receive Date: 20091001
  Receipt Date: 20090922
  Transmission Date: 20100525
  Serious: Yes (Hospitalization)
  Sender: FDA-Public Use
  Company Number: CA-CELGENEUS-028-21880-09080803

PATIENT
  Sex: Female

DRUGS (7)
  1. REVLIMID [Suspect]
     Indication: MULTIPLE MYELOMA
     Route: 048
     Dates: start: 20090422, end: 20090428
  2. REVLIMID [Suspect]
     Route: 048
     Dates: start: 20090502, end: 20090501
  3. REVLIMID [Suspect]
     Route: 048
     Dates: start: 20090501, end: 20090101
  4. DEXAMETHASONE 4MG TAB [Suspect]
     Indication: DRUG USE FOR UNKNOWN INDICATION
     Route: 048
     Dates: start: 20081216
  5. WARFARIN SODIUM [Concomitant]
     Route: 048
     Dates: start: 20090421, end: 20090501
  6. MAVIK [Concomitant]
     Indication: HYPERTENSION
     Route: 048
     Dates: start: 20090210
  7. RANITIDINE [Concomitant]
     Indication: DRUG USE FOR UNKNOWN INDICATION
     Route: 048
     Dates: start: 20090421, end: 20090501

REACTIONS (7)
  - ASTHENIA [None]
  - CONFUSIONAL STATE [None]
  - EPISTAXIS [None]
  - HYPOAESTHESIA [None]
  - IRRITABILITY [None]
  - MONOPLEGIA [None]
  - PARAESTHESIA [None]
